FAERS Safety Report 19417351 (Version 1)
Quarter: 2021Q2

REPORT INFORMATION
  Report Type: Spontaneous
  Country: US (occurrence: US)
  Receive Date: 20210615
  Receipt Date: 20210615
  Transmission Date: 20210717
  Serious: Yes (Death)
  Sender: FDA-Public Use
  Company Number: None

PATIENT
  Sex: Female

DRUGS (8)
  1. EMLA [Concomitant]
     Active Substance: LIDOCAINE\PRILOCAINE
  2. COMBIGAN [Concomitant]
     Active Substance: BRIMONIDINE TARTRATE\TIMOLOL MALEATE
  3. PROCHLORPERAZINE 10 MG TAB [Concomitant]
  4. CAPECITABINE 500 MG TAB [Suspect]
     Active Substance: CAPECITABINE
     Indication: COLON CANCER
     Route: 048
  5. CRANBERRY WITH VITAMIN C [Concomitant]
  6. ACETAMINOPHEN 325 MG TAB [Concomitant]
  7. ADVIL 200 MG CAP [Concomitant]
  8. SYNTHROID 88 MCG TAB [Concomitant]

REACTIONS (1)
  - Death [None]
